FAERS Safety Report 16910987 (Version 2)
Quarter: 2020Q1

REPORT INFORMATION
  Report Type: Spontaneous
  Country: FR (occurrence: FR)
  Receive Date: 20191012
  Receipt Date: 20200107
  Transmission Date: 20200409
  Serious: Yes (Death, Hospitalization)
  Sender: FDA-Public Use
  Company Number: FR-ACCORD-157298

PATIENT
  Age: 52 Year
  Sex: Male
  Weight: 45 kg

DRUGS (12)
  1. BIPROFENID LP [Interacting]
     Active Substance: KETOPROFEN
     Indication: ANKYLOSING SPONDYLITIS
     Dosage: STRENGTH: 100 MG, SCORED TABLET PROLONGED RELEASE
  2. LANSOPRAZOLE. [Interacting]
     Active Substance: LANSOPRAZOLE
     Indication: PROPHYLAXIS AGAINST GASTROINTESTINAL ULCER
     Route: 048
  3. BIPROFENID LP [Interacting]
     Active Substance: KETOPROFEN
     Indication: ANKYLOSING SPONDYLITIS
     Dosage: STRENGTH: 100 MG, SCORED TABLET PROLONGED RELEASE
  4. PERINDOPRIL [Concomitant]
     Active Substance: PERINDOPRIL
  5. OROZAMUDOL [Concomitant]
     Active Substance: TRAMADOL
  6. NOVORAPID [Concomitant]
     Active Substance: INSULIN ASPART
     Dosage: STRENGTH: 100 U/ML, SOLUTION FOR INJECTION IN VIAL
  7. PARACETAMOL [Concomitant]
     Active Substance: ACETAMINOPHEN
  8. TRAMADOL. [Concomitant]
     Active Substance: TRAMADOL
  9. LANTUS [Concomitant]
     Active Substance: INSULIN GLARGINE
  10. METHOTREXATE. [Suspect]
     Active Substance: METHOTREXATE
     Indication: ANKYLOSING SPONDYLITIS
     Route: 058
     Dates: start: 20190814, end: 201909
  11. FOLIC ACID. [Concomitant]
     Active Substance: FOLIC ACID
  12. COSENTYX [Concomitant]
     Active Substance: SECUKINUMAB
     Indication: PRODUCT USED FOR UNKNOWN INDICATION
     Dosage: 2 INJECTIONS OF 150 MG TAKEN ONE TIME/WEEK
     Route: 058
     Dates: start: 20190815

REACTIONS (2)
  - Pancytopenia [Fatal]
  - Drug interaction [Unknown]

NARRATIVE: CASE EVENT DATE: 201908
